FAERS Safety Report 9261950 (Version 2)
Quarter: 2013Q2

REPORT INFORMATION
  Report Type: Report from Study
  Country: US (occurrence: US)
  Receive Date: 20130429
  Receipt Date: 20130530
  Transmission Date: 20140414
  Serious: Yes (Other)
  Sender: FDA-Public Use
  Company Number: US-US-EMD SERONO, INC.-7207273

PATIENT
  Age: 25 Year
  Sex: Male

DRUGS (2)
  1. REBIF [Suspect]
     Indication: MULTIPLE SCLEROSIS
     Route: 058
     Dates: start: 20121207
  2. NAPROXEN [Concomitant]
     Indication: PREMEDICATION

REACTIONS (3)
  - Optic neuritis [Recovering/Resolving]
  - Multiple sclerosis relapse [Unknown]
  - Influenza like illness [Unknown]
